FAERS Safety Report 7741900-4 (Version None)
Quarter: 2011Q3

REPORT INFORMATION
  Report Type: 
  Country: None (occurrence: None)
  Receive Date: 20110906
  Receipt Date: 20110829
  Transmission Date: 20111222
  Serious: Yes (Hospitalization)
  Sender: FDA-Public Use
  Company Number: LEO-2011-00689

PATIENT
  Sex: Female
  Weight: 97 kg

DRUGS (5)
  1. HEPARIN [Suspect]
     Indication: DEEP VEIN THROMBOSIS
     Dosage: 10000 IU (10000 IU, PRN WHEN INR { 2.0), SUBCUTANEOUS
     Route: 058
  2. WARFARIN SODIUM [Suspect]
     Indication: DEEP VEIN THROMBOSIS
     Dosage: 10 TO 50 MG/DAY (10 TO 50 MG PER DAY BASED ON INR), ORAL
     Route: 048
  3. ENOXAPARIN [Suspect]
     Indication: DEEP VEIN THROMBOSIS
     Dosage: (PRN - FULL DOSE WHEN INR { 2.0), SUBCUTANEOUS
     Route: 058
     Dates: start: 19960912, end: 19960924
  4. SUMATRIPTAN SUCCINATE [Concomitant]
  5. INNOHEP [Suspect]
     Indication: DEEP VEIN THROMBOSIS
     Dosage: (PRN - FULL DOSE WHEN INR {2.0), SUBCUTANEOUS
     Route: 058

REACTIONS (1)
  - DEEP VEIN THROMBOSIS [None]
